FAERS Safety Report 25644625 (Version 1)
Quarter: 2025Q3

REPORT INFORMATION
  Report Type: Spontaneous
  Country: EU (occurrence: EU)
  Receive Date: 20250805
  Receipt Date: 20250805
  Transmission Date: 20251021
  Serious: Yes (Hospitalization, Other)
  Sender: PFIZER
  Company Number: EU-SANDOZ-SDZ2025IT016654

PATIENT
  Age: 72 Year
  Sex: Male
  Weight: 70.023 kg

DRUGS (18)
  1. TUCATINIB [Suspect]
     Active Substance: TUCATINIB
     Indication: HER2 positive colorectal cancer
     Dosage: 300 MG, BID
     Route: 048
     Dates: start: 20240523, end: 20240623
  2. TUCATINIB [Suspect]
     Active Substance: TUCATINIB
     Route: 065
  3. TRASTUZUMAB [Suspect]
     Active Substance: TRASTUZUMAB
     Indication: HER2 positive colorectal cancer
     Dosage: 8 MG/KG, Q3W SINGLE LOADING DOSE 8 MG/KG IV ON C1D1
     Dates: start: 20240523, end: 20240523
  4. TRASTUZUMAB [Suspect]
     Active Substance: TRASTUZUMAB
     Dosage: 560 MG, QD
     Route: 065
     Dates: start: 20240523, end: 20240624
  5. LEVOLEUCOVORIN CALCIUM [Suspect]
     Active Substance: LEVOLEUCOVORIN CALCIUM
     Indication: HER2 positive colorectal cancer
     Route: 042
     Dates: start: 20240523, end: 20240618
  6. LEVOLEUCOVORIN CALCIUM [Suspect]
     Active Substance: LEVOLEUCOVORIN CALCIUM
     Route: 042
     Dates: start: 20240523, end: 20240624
  7. LEVOLEUCOVORIN CALCIUM [Suspect]
     Active Substance: LEVOLEUCOVORIN CALCIUM
     Indication: HER2 positive colorectal cancer
     Route: 042
     Dates: start: 20240523, end: 20240624
  8. OXALIPLATIN [Suspect]
     Active Substance: OXALIPLATIN
     Indication: HER2 positive colorectal cancer
     Route: 042
     Dates: start: 20240523, end: 20240618
  9. OXALIPLATIN [Suspect]
     Active Substance: OXALIPLATIN
     Route: 065
  10. OXALIPLATIN [Suspect]
     Active Substance: OXALIPLATIN
     Route: 042
     Dates: start: 20240523, end: 20240624
  11. FLUOROURACIL [Suspect]
     Active Substance: FLUOROURACIL
     Indication: HER2 positive colorectal cancer
     Route: 042
     Dates: start: 20240523, end: 20240618
  12. FLUOROURACIL [Suspect]
     Active Substance: FLUOROURACIL
     Route: 042
     Dates: start: 20240523, end: 20240624
  13. FLUOROURACIL [Suspect]
     Active Substance: FLUOROURACIL
     Route: 042
     Dates: start: 20240523, end: 20240624
  14. LOPERAMIDE [Suspect]
     Active Substance: LOPERAMIDE
     Indication: HER2 positive colorectal cancer
     Dosage: 4 MG, TID DAYS 1 TO 14
     Route: 048
     Dates: start: 20240523, end: 20240623
  15. LOPERAMIDE [Suspect]
     Active Substance: LOPERAMIDE
     Dosage: 4 MG, BID DAY 15 THROUGH DAY 42
     Route: 065
  16. FLUOROURACIL [Suspect]
     Active Substance: FLUOROURACIL
     Route: 065
  17. METFORMIN [Concomitant]
     Active Substance: METFORMIN HYDROCHLORIDE
     Route: 065
     Dates: start: 2014, end: 20240624
  18. EMPAGLIFLOZIN [Concomitant]
     Active Substance: EMPAGLIFLOZIN
     Route: 065
     Dates: start: 2014, end: 20240624

REACTIONS (2)
  - Blood creatinine increased [Unknown]
  - Acute kidney injury [Recovered/Resolved]

NARRATIVE: CASE EVENT DATE: 20240624
